FAERS Safety Report 22653856 (Version 1)
Quarter: 2023Q2

REPORT INFORMATION
  Report Type: Spontaneous
  Country: US (occurrence: None)
  Receive Date: 20230629
  Receipt Date: 20230629
  Transmission Date: 20230721
  Serious: Yes (Hospitalization, Other)
  Sender: FDA-Public Use
  Company Number: US-INFO-20230105

PATIENT
  Sex: Female
  Weight: 64 kg

DRUGS (4)
  1. ZOLEDRONIC ACID [Suspect]
     Active Substance: ZOLEDRONIC ACID
     Indication: Osteoporosis
     Dosage: IN TOTAL
     Route: 040
     Dates: start: 20230517, end: 20230517
  2. COLACE [Concomitant]
     Active Substance: DOCUSATE SODIUM
     Dosage: ()
     Route: 048
  3. LATANOPROST [Concomitant]
     Active Substance: LATANOPROST
     Dosage: ()
     Route: 047
  4. VITAMINS [Concomitant]
     Active Substance: VITAMINS
     Dosage: ()
     Route: 048

REACTIONS (3)
  - Iritis [Not Recovered/Not Resolved]
  - Chills [Unknown]
  - Off label use [Unknown]

NARRATIVE: CASE EVENT DATE: 20230518
